FAERS Safety Report 8887237 (Version 2)
Quarter: 2012Q4

REPORT INFORMATION
  Report Type: Report from Study
  Country: US (occurrence: US)
  Receive Date: 20121105
  Receipt Date: 20121105
  Transmission Date: 20130627
  Serious: Yes (Death)
  Sender: FDA-Public Use
  Company Number: US-CELGENEUS-163-21880-12110307

PATIENT
  Age: 70 Year
  Sex: Male
  Weight: 108.2 kg

DRUGS (2)
  1. REVLIMID [Suspect]
     Indication: LYMPHOMA
     Route: 048
     Dates: start: 20080304
  2. REVLIMID [Suspect]
     Route: 048
     Dates: start: 20080928, end: 20081107

REACTIONS (1)
  - Acute myeloid leukaemia [Fatal]
